FAERS Safety Report 10921634 (Version 1)
Quarter: 2015Q1

REPORT INFORMATION
  Report Type: Spontaneous
  Country: JP (occurrence: None)
  Receive Date: 20150312
  Receipt Date: 20150312
  Transmission Date: 20150721
  Serious: Yes (Life-Threatening, Other)
  Sender: FDA-Public Use
  Company Number: 2780727

PATIENT
  Age: 83 Year
  Sex: Male
  Weight: 61 kg

DRUGS (6)
  1. BUPIVACAINE HYDROCHLORIDE MONOHYDRATE [Concomitant]
  2. CEFAZOLIN SODIUM. [Concomitant]
     Active Substance: CEFAZOLIN SODIUM
  3. DEXMEDETOMIDINE HYDROCHLORIDE. [Suspect]
     Active Substance: DEXMEDETOMIDINE HYDROCHLORIDE
     Indication: SEDATION
     Dosage: 0.2-1 UG/KG/HR, INTRAVENOUS
     Route: 041
     Dates: start: 20141211, end: 20141211
  4. FENTANYL CITRATE. [Concomitant]
     Active Substance: FENTANYL CITRATE
  5. LIDOCAINE. [Concomitant]
     Active Substance: LIDOCAINE
  6. TRANEXAMIC ACID. [Concomitant]
     Active Substance: TRANEXAMIC ACID

REACTIONS (3)
  - Cardiac arrest [None]
  - Accidental overdose [None]
  - Wrong technique in drug usage process [None]

NARRATIVE: CASE EVENT DATE: 20141211
